FAERS Safety Report 7148367-8 (Version None)
Quarter: 2010Q4

REPORT INFORMATION
  Report Type: 
  Country: None (occurrence: None)
  Receive Date: 20101209
  Receipt Date: 20101202
  Transmission Date: 20110411
  Serious: Yes (Other)
  Sender: FDA-Public Use
  Company Number: US-PFIZER INC-2010163134

PATIENT
  Sex: Female
  Weight: 60.3 kg

DRUGS (12)
  1. PREMARIN [Suspect]
     Indication: ATROPHIC VULVOVAGINITIS
     Dosage: UNSPECIFIED, SPORADICALLY
     Route: 067
     Dates: start: 20050101
  2. NEURONTIN [Concomitant]
     Dosage: 300 MG, DAILY
  3. ULTRAM [Concomitant]
     Dosage: 25 MG, DAILY
  4. PRILOSEC [Concomitant]
     Dosage: 20 MG, DAILY
  5. ACETYLSALICYLIC ACID [Concomitant]
     Dosage: UNK, DAILY
  6. VALIUM [Concomitant]
     Dosage: UNK, AS NEEDED
  7. ASCORBIC ACID [Concomitant]
     Dosage: UNK MG, UNK
  8. ZINC [Concomitant]
     Dosage: UNK MG, UNK
  9. VITAMIN D3 [Concomitant]
     Dosage: 1000 UNITS, UNK
  10. MULTI-VITAMINS [Concomitant]
     Dosage: UNK
  11. FISH OIL [Concomitant]
     Dosage: 1000 MG, DAILY
  12. VITAMIN E [Concomitant]
     Dosage: 400 UNITS, UNK

REACTIONS (8)
  - GENITAL INJURY [None]
  - METRORRHAGIA [None]
  - MUSCLE DISORDER [None]
  - PELVIC PAIN [None]
  - PRURITUS [None]
  - SINUSITIS [None]
  - SUPRAPUBIC PAIN [None]
  - URINARY TRACT INFECTION [None]
